FAERS Safety Report 21865720 (Version 2)
Quarter: 2023Q2

REPORT INFORMATION
  Report Type: Spontaneous
  Country: US (occurrence: US)
  Receive Date: 20230116
  Receipt Date: 20230420
  Transmission Date: 20230721
  Serious: No
  Sender: FDA-Public Use
  Company Number: US-SA-SAC20230112001085

PATIENT
  Sex: Female

DRUGS (1)
  1. DUPIXENT [Suspect]
     Active Substance: DUPILUMAB
     Dosage: 300 MG, UNK
     Route: 058

REACTIONS (3)
  - Injection site pain [Unknown]
  - Asthma [Not Recovered/Not Resolved]
  - Therapeutic response decreased [Unknown]
